FAERS Safety Report 13588571 (Version 1)
Quarter: 2017Q2

REPORT INFORMATION
  Report Type: Spontaneous
  Country: US (occurrence: US)
  Receive Date: 20170529
  Receipt Date: 20170529
  Transmission Date: 20170830
  Serious: Yes (Hospitalization, Other)
  Sender: FDA-Public Use
  Company Number: US-AMGEN-USASP2017078126

PATIENT
  Age: 57 Year
  Sex: Female

DRUGS (1)
  1. SENSIPAR [Suspect]
     Active Substance: CINACALCET HYDROCHLORIDE
     Indication: HYPERPARATHYROIDISM PRIMARY
     Dosage: UNK
     Route: 048

REACTIONS (2)
  - Blood calcium abnormal [Unknown]
  - Cerebrovascular accident [Unknown]
